FAERS Safety Report 17797916 (Version 6)
Quarter: 2021Q1

REPORT INFORMATION
  Report Type: Spontaneous
  Country: US (occurrence: US)
  Receive Date: 20200518
  Receipt Date: 20210205
  Transmission Date: 20210419
  Serious: Yes (Other)
  Sender: FDA-Public Use
  Company Number: US-PFIZER INC-2020093239

PATIENT
  Age: 42 Year
  Sex: Female

DRUGS (2)
  1. LORBRENA [Suspect]
     Active Substance: LORLATINIB
     Indication: LUNG NEOPLASM MALIGNANT
     Dosage: 100 MG
     Dates: start: 202001
  2. COUMADIN [Concomitant]
     Active Substance: WARFARIN SODIUM
     Dosage: UNK

REACTIONS (13)
  - Fluid retention [Unknown]
  - Illness [Unknown]
  - Memory impairment [Unknown]
  - Gallbladder disorder [Unknown]
  - Swelling [Unknown]
  - Weight loss poor [Unknown]
  - COVID-19 [Recovered/Resolved]
  - Hypoaesthesia [Unknown]
  - Paraesthesia [Unknown]
  - Body height decreased [Unknown]
  - Blood cholesterol increased [Unknown]
  - Dehydration [Unknown]
  - Emotional disorder [Unknown]

NARRATIVE: CASE EVENT DATE: 20210116
